FAERS Safety Report 4958008-3 (Version None)
Quarter: 2006Q1

REPORT INFORMATION
  Report Type: 
  Country: None (occurrence: None)
  Receive Date: 20060330
  Receipt Date: 20060223
  Transmission Date: 20060701
  Serious: No
  Sender: FDA-Public Use
  Company Number: US-BRISTOL-MYERS SQUIBB COMPANY-13293873

PATIENT
  Age: 66 Year
  Sex: Female
  Weight: 64 kg

DRUGS (7)
  1. REYATAZ [Suspect]
     Indication: HIV INFECTION
     Route: 048
     Dates: start: 20051001
  2. NORVIR [Concomitant]
  3. VIREAD [Concomitant]
  4. COMBIVIR [Concomitant]
  5. NORVASC [Concomitant]
  6. KLONOPIN [Concomitant]
     Dates: start: 20060210
  7. LEXAPRO [Concomitant]
     Dates: start: 20060210

REACTIONS (4)
  - HEADACHE [None]
  - NAUSEA [None]
  - SINUS CONGESTION [None]
  - VOMITING [None]
